FAERS Safety Report 5189224-6 (Version None)
Quarter: 2006Q4

REPORT INFORMATION
  Report Type: 
  Country: None (occurrence: None)
  Receive Date: 20061215
  Receipt Date: 20061206
  Transmission Date: 20070319
  Serious: Yes (Death, Hospitalization, Other)
  Sender: FDA-Public Use
  Company Number: 2006121633

PATIENT
  Age: 65 Year
  Sex: Male
  Weight: 74.8435 kg

DRUGS (4)
  1. LIPITOR [Suspect]
     Dates: start: 20030301
  2. DRUG, UNSPECIFIED (DRUG, UNSPECIFIED) [Concomitant]
  3. PLAVIX [Concomitant]
  4. PREVACID [Concomitant]

REACTIONS (3)
  - COLONIC POLYP [None]
  - CORONARY ARTERY STENOSIS [None]
  - METASTASES TO LIVER [None]
